FAERS Safety Report 8496404-0 (Version None)
Quarter: 2012Q3

REPORT INFORMATION
  Report Type: 
  Country: None (occurrence: None)
  Receive Date: 20120709
  Receipt Date: 20120628
  Transmission Date: 20120928
  Serious: Yes (Hospitalization, Disabling)
  Sender: FDA-Public Use
  Company Number: US-GLAXOSMITHKLINE-A0982887A

PATIENT
  Sex: Female

DRUGS (2)
  1. ARZERRA [Suspect]
     Indication: PRODUCT USED FOR UNKNOWN INDICATION
     Dosage: 300MG SINGLE DOSE
     Route: 042
  2. REVLIMID [Concomitant]

REACTIONS (4)
  - NECK PAIN [None]
  - OROPHARYNGEAL PAIN [None]
  - ABASIA [None]
  - INFUSION RELATED REACTION [None]
